FAERS Safety Report 22152359 (Version 1)
Quarter: 2023Q1

REPORT INFORMATION
  Report Type: Spontaneous
  Country: JP (occurrence: JP)
  Receive Date: 20230329
  Receipt Date: 20230329
  Transmission Date: 20230418
  Serious: Yes (Death, Hospitalization, Other)
  Sender: FDA-Public Use
  Company Number: JP-GILEAD-2023-0621511

PATIENT
  Age: 7 Decade
  Sex: Male

DRUGS (5)
  1. VEKLURY [Suspect]
     Active Substance: REMDESIVIR
     Indication: COVID-19
     Dosage: UNK
     Route: 065
  2. VEKLURY [Suspect]
     Active Substance: REMDESIVIR
     Dosage: UNK
     Route: 065
  3. TACROLIMUS [Concomitant]
     Active Substance: TACROLIMUS
     Indication: Myelodysplastic syndrome
     Dosage: UNK
  4. MYCOPHENOLATE MOFETIL [Concomitant]
     Active Substance: MYCOPHENOLATE MOFETIL
     Indication: Myelodysplastic syndrome
     Dosage: 2000 MG/DAY
  5. PREDNISOLONE [Concomitant]
     Active Substance: PREDNISOLONE
     Indication: Myelodysplastic syndrome
     Dosage: 35 MG/DAY

REACTIONS (5)
  - Death [Fatal]
  - Nephropathy toxic [Recovering/Resolving]
  - Fluid retention [Recovering/Resolving]
  - Cardiovascular insufficiency [Recovering/Resolving]
  - Dyspnoea [Recovering/Resolving]
